FAERS Safety Report 21211984 (Version 2)
Quarter: 2023Q1

REPORT INFORMATION
  Report Type: Spontaneous
  Country: IT (occurrence: IT)
  Receive Date: 20220815
  Receipt Date: 20230124
  Transmission Date: 20230418
  Serious: Yes (Other)
  Sender: FDA-Public Use
  Company Number: IT-PFIZER INC-PV202200042091

PATIENT
  Age: 54 Year
  Sex: Male
  Weight: 51 kg

DRUGS (1)
  1. INFLIXIMAB [Suspect]
     Active Substance: INFLIXIMAB
     Indication: Colitis ulcerative
     Dosage: 400 MG, (EV OGNI 8 SETTIMANE)
     Route: 042
     Dates: start: 20171129, end: 20211112

REACTIONS (2)
  - Squamous cell carcinoma of the oral cavity [Unknown]
  - COVID-19 [Unknown]

NARRATIVE: CASE EVENT DATE: 20210801
